FAERS Safety Report 7801374-1 (Version None)
Quarter: 2011Q4

REPORT INFORMATION
  Report Type: 
  Country: None (occurrence: None)
  Receive Date: 20111007
  Receipt Date: 20111004
  Transmission Date: 20120403
  Serious: No
  Sender: FDA-Public Use
  Company Number: US-PFIZER INC-2011192667

PATIENT
  Sex: Male

DRUGS (1)
  1. CHANTIX [Suspect]
     Indication: THERAPY CESSATION
     Dosage: 0.5 MG, 2X/DAY
     Route: 048
     Dates: start: 20110805, end: 20110819

REACTIONS (2)
  - DIZZINESS [None]
  - FLUSHING [None]
